FAERS Safety Report 25711538 (Version 1)
Quarter: 2025Q3

REPORT INFORMATION
  Report Type: Spontaneous
  Country: EU (occurrence: EU)
  Receive Date: 20250821
  Receipt Date: 20250821
  Transmission Date: 20251020
  Serious: Yes (Other)
  Sender: ESPERION THERAPEUTICS
  Company Number: EU-DAIICHI SANKYO EUROPE GMBH-DS-2025-159062-DE

PATIENT
  Age: 83 Year
  Sex: Female

DRUGS (2)
  1. BEMPEDOIC ACID [Suspect]
     Active Substance: BEMPEDOIC ACID
     Indication: Hypercholesterolaemia
     Route: 065
     Dates: start: 202408
  2. EZETIMIBE [Concomitant]
     Active Substance: EZETIMIBE
     Indication: Hypercholesterolaemia
     Route: 065

REACTIONS (5)
  - General physical health deterioration [Not Recovered/Not Resolved]
  - Pruritus [Not Recovered/Not Resolved]
  - Limb discomfort [Not Recovered/Not Resolved]
  - Gait disturbance [Not Recovered/Not Resolved]
  - Inappropriate schedule of product administration [Not Recovered/Not Resolved]

NARRATIVE: CASE EVENT DATE: 20240801
